FAERS Safety Report 25586725 (Version 2)
Quarter: 2025Q3

REPORT INFORMATION
  Report Type: Report from Study
  Country: US (occurrence: US)
  Receive Date: 20250721
  Receipt Date: 20250807
  Transmission Date: 20251020
  Serious: Yes (Death, Other)
  Sender: PFIZER
  Company Number: US-PFIZER INC-PV202400144799

PATIENT
  Age: 74 Year
  Sex: Male
  Weight: 90.7 kg

DRUGS (3)
  1. VYNDAMAX [Suspect]
     Active Substance: TAFAMIDIS
     Indication: Cardiac amyloidosis
     Dosage: 61 MG, 1X/DAY
     Route: 048
     Dates: start: 20240624
  2. VYNDAMAX [Suspect]
     Active Substance: TAFAMIDIS
     Dosage: 61 MG, 1X/DAY
     Route: 048
  3. LASIX [Concomitant]
     Active Substance: FUROSEMIDE

REACTIONS (2)
  - Bladder cancer [Fatal]
  - Brain natriuretic peptide increased [Unknown]

NARRATIVE: CASE EVENT DATE: 20240101
